FAERS Safety Report 12197540 (Version 2)
Quarter: 2016Q3

REPORT INFORMATION
  Report Type: Spontaneous
  Country: JP (occurrence: JP)
  Receive Date: 20160322
  Receipt Date: 20160706
  Transmission Date: 20161109
  Serious: Yes (Other)
  Sender: FDA-Public Use
  Company Number: JP-PFIZER INC-2016162235

PATIENT
  Age: 48 Year

DRUGS (3)
  1. ELPLAT [Suspect]
     Active Substance: OXALIPLATIN
     Indication: APPENDIX CANCER
     Dosage: 200 MG, 1X/DAY
     Route: 041
     Dates: start: 20151029, end: 20160122
  2. LYRICA [Suspect]
     Active Substance: PREGABALIN
     Indication: NEUROPATHY PERIPHERAL
     Dosage: 75 MG, 2X/DAY
     Route: 048
     Dates: start: 20151119, end: 20160314
  3. TS-1 [Concomitant]
     Active Substance: GIMERACIL\OTERACIL\TEGAFUR
     Indication: APPENDIX CANCER
     Dosage: 60 MG, 2X/DAY
     Route: 048
     Dates: start: 20151029, end: 20160212

REACTIONS (1)
  - Asthenia [Unknown]
